FAERS Safety Report 24308370 (Version 2)
Quarter: 2024Q4

REPORT INFORMATION
  Report Type: Spontaneous
  Country: US (occurrence: US)
  Receive Date: 20240911
  Receipt Date: 20241011
  Transmission Date: 20250115
  Serious: No
  Sender: PFIZER
  Company Number: US-PFIZER INC-PV202400118719

PATIENT
  Age: 66 Year
  Sex: Female

DRUGS (1)
  1. IBRANCE [Suspect]
     Active Substance: PALBOCICLIB
     Indication: Breast cancer female
     Dosage: 100 MG, TAKE 1 TABLET ONCE DAILY ON DAYS 1-21, EVERY 28 DAY CYCLE
     Route: 048
     Dates: start: 20240829

REACTIONS (6)
  - Visual impairment [Unknown]
  - Fatigue [Unknown]
  - Nausea [Unknown]
  - Malaise [Unknown]
  - Sleep disorder [Unknown]
  - Depression [Unknown]

NARRATIVE: CASE EVENT DATE: 20240101
